FAERS Safety Report 7323289-8 (Version None)
Quarter: 2011Q1

REPORT INFORMATION
  Report Type: 
  Country: None (occurrence: None)
  Receive Date: 20110301
  Receipt Date: 20110221
  Transmission Date: 20110831
  Serious: Yes (Hospitalization)
  Sender: FDA-Public Use
  Company Number: US-B.I. PHARMACEUTICALS,INC./RIDGEFIELD-2011-BP-04778BP

PATIENT
  Sex: Male

DRUGS (9)
  1. EXELON [Concomitant]
  2. LISINOPRIL [Concomitant]
  3. PRADAXA [Suspect]
     Dosage: 300 MG
     Route: 048
     Dates: start: 20110127
  4. LEVOXYL [Concomitant]
     Indication: THYROID DISORDER
  5. METOPROLOL [Concomitant]
  6. FISH OIL [Concomitant]
  7. FLOMAX [Concomitant]
     Indication: PROSTATIC DISORDER
  8. FINASTERIDE [Concomitant]
  9. ASPIRIN [Concomitant]

REACTIONS (1)
  - CHEST PAIN [None]
